FAERS Safety Report 16562972 (Version 1)
Quarter: 2019Q3

REPORT INFORMATION
  Report Type: Report from Study
  Country: IT (occurrence: IT)
  Receive Date: 20190711
  Receipt Date: 20190711
  Transmission Date: 20191004
  Serious: Yes (Other)
  Sender: FDA-Public Use
  Company Number: IT-TAKEDA-2019TUS039777

PATIENT
  Age: 52 Year
  Sex: Female

DRUGS (6)
  1. PENTACOL [Concomitant]
     Active Substance: MESALAMINE
     Dosage: UNK UNK, QD
  2. VEDOLIZUMAB [Suspect]
     Active Substance: VEDOLIZUMAB
     Dosage: 300 MILLIGRAM
     Route: 042
  3. TICHE [Concomitant]
     Dosage: 125 MILLIGRAM
  4. VEDOLIZUMAB [Suspect]
     Active Substance: VEDOLIZUMAB
     Indication: CROHN^S DISEASE
     Dosage: 300 MILLIGRAM, Q4WEEKS
     Route: 042
     Dates: start: 201612
  5. TICHE [Concomitant]
     Dosage: 137 MILLIGRAM
  6. METHOTREXATE. [Concomitant]
     Active Substance: METHOTREXATE
     Dosage: 20 MILLIGRAM, QD
     Route: 030

REACTIONS (3)
  - Occult blood positive [Unknown]
  - Road traffic accident [Unknown]
  - Colon cancer [Unknown]

NARRATIVE: CASE EVENT DATE: 201906
